FAERS Safety Report 8228474-9 (Version None)
Quarter: 2012Q1

REPORT INFORMATION
  Report Type: 
  Country: None (occurrence: None)
  Receive Date: 20120322
  Receipt Date: 20110606
  Transmission Date: 20120608
  Serious: Yes (Hospitalization)
  Sender: FDA-Public Use
  Company Number: US-BRISTOL-MYERS SQUIBB COMPANY-15806565

PATIENT
  Age: 55 Year
  Sex: Male

DRUGS (2)
  1. ERBITUX [Suspect]
  2. BENADRYL [Concomitant]

REACTIONS (2)
  - HYPERSENSITIVITY [None]
  - CARDIAC ARREST [None]
